FAERS Safety Report 11868930 (Version 2)
Quarter: 2016Q1

REPORT INFORMATION
  Report Type: Spontaneous
  Country: US (occurrence: US)
  Receive Date: 20151225
  Receipt Date: 20160107
  Transmission Date: 20160526
  Serious: Yes (Hospitalization)
  Sender: FDA-Public Use
  Company Number: US-AUROBINDO-AUR-APL-2015-11666

PATIENT
  Age: 61 Year
  Sex: Female

DRUGS (2)
  1. CEPHALEXIN. [Suspect]
     Active Substance: CEPHALEXIN
     Indication: BRONCHITIS
     Route: 065
  2. PREDNISONE. [Concomitant]
     Active Substance: PREDNISONE
     Indication: BRONCHITIS
     Route: 065

REACTIONS (11)
  - Renal impairment [Recovered/Resolved]
  - Rash maculo-papular [Recovered/Resolved]
  - Haemolytic anaemia [Recovered/Resolved]
  - Chromaturia [Recovered/Resolved]
  - Fatigue [Recovered/Resolved]
  - Dyspnoea [Recovered/Resolved]
  - Pyrexia [Recovered/Resolved]
  - Oliguria [Recovered/Resolved]
  - Flank pain [Recovered/Resolved]
  - Pigment nephropathy [Recovered/Resolved]
  - Rash [Recovered/Resolved]
